FAERS Safety Report 7171816-6 (Version None)
Quarter: 2010Q4

REPORT INFORMATION
  Report Type: 
  Country: None (occurrence: None)
  Receive Date: 20101217
  Receipt Date: 20101209
  Transmission Date: 20110411
  Serious: Yes (Hospitalization, Other)
  Sender: FDA-Public Use
  Company Number: JP-ABBOTT-10P-087-0633638-00

PATIENT
  Sex: Female
  Weight: 65 kg

DRUGS (16)
  1. HUMIRA [Suspect]
     Indication: RHEUMATOID ARTHRITIS
     Route: 058
     Dates: start: 20100201, end: 20100301
  2. SULFAMETHOXAZOLE/METHOPRIM [Concomitant]
     Indication: ANTIFUNGAL PROPHYLAXIS
     Route: 048
     Dates: end: 20100315
  3. TACROLIMUS [Concomitant]
     Indication: RHEUMATOID ARTHRITIS
     Route: 048
  4. PREDNISOLONE [Concomitant]
     Indication: RHEUMATOID ARTHRITIS
     Route: 048
  5. INSULIN [Concomitant]
     Indication: DIABETES MELLITUS
     Route: 058
  6. ZOPICLONE [Concomitant]
     Indication: INSOMNIA
     Route: 048
  7. OMEPRAZOLE [Concomitant]
     Indication: GASTROINTESTINAL DISORDER
     Route: 048
  8. OMEPRAZOLE [Concomitant]
     Indication: PROPHYLAXIS
  9. REBAMIPIDE [Concomitant]
     Indication: PROPHYLAXIS
     Route: 048
  10. REBAMIPIDE [Concomitant]
     Indication: GASTROINTESTINAL DISORDER
  11. DICLOFENAC SODIUM [Concomitant]
     Indication: PAIN MANAGEMENT
     Dosage: DAILY AS NEEDED
     Route: 048
  12. LOXOPROFEN SODIUM HYDRATE [Concomitant]
     Indication: RHEUMATOID ARTHRITIS
     Route: 048
  13. LOXOPROFEN SODIUM HYDRATE [Concomitant]
     Indication: PAIN
  14. EPERISONE HYDROCHLORIDE [Concomitant]
     Indication: BACK PAIN
     Route: 048
  15. EPERISONE HYDROCHLORIDE [Concomitant]
     Indication: CERVICOBRACHIAL SYNDROME
  16. EPERISONE HYDROCHLORIDE [Concomitant]
     Indication: NECK PAIN

REACTIONS (3)
  - AUTOIMMUNE HEPATITIS [None]
  - HEPATIC FUNCTION ABNORMAL [None]
  - MALAISE [None]
